FAERS Safety Report 22090340 (Version 2)
Quarter: 2023Q1

REPORT INFORMATION
  Report Type: Spontaneous
  Country: AU (occurrence: AU)
  Receive Date: 20230313
  Receipt Date: 20230320
  Transmission Date: 20230418
  Serious: Yes (Other)
  Sender: FDA-Public Use
  Company Number: AU-BAYER-2023A029727

PATIENT
  Age: 51 Year
  Sex: Female

DRUGS (1)
  1. MIRENA [Suspect]
     Active Substance: LEVONORGESTREL
     Indication: Contraception
     Dosage: 20?G/DAY
     Route: 015
     Dates: end: 20230306

REACTIONS (4)
  - Device breakage [Recovered/Resolved]
  - Complication of device removal [None]
  - Device expulsion [None]
  - Pelvic pain [None]

NARRATIVE: CASE EVENT DATE: 20230306
